FAERS Safety Report 9388994 (Version 1)
Quarter: 2013Q3

REPORT INFORMATION
  Report Type: Spontaneous
  Country: US (occurrence: US)
  Receive Date: 20130708
  Receipt Date: 20130708
  Transmission Date: 20140515
  Serious: Yes (Other)
  Sender: FDA-Public Use
  Company Number: US-CELGENEUS-163-POMAL-13064349

PATIENT
  Sex: 0

DRUGS (5)
  1. POMALYST [Suspect]
     Indication: WALDENSTROM^S MACROGLOBULINAEMIA REFRACTORY
     Dosage: .5 MILLIGRAM
     Route: 048
  2. POMALYST [Suspect]
     Dosage: 1 MILLIGRAM
     Route: 048
  3. RITUXIMAB [Suspect]
     Indication: WALDENSTROM^S MACROGLOBULINAEMIA REFRACTORY
     Route: 041
  4. DEXAMETHASONE [Suspect]
     Indication: WALDENSTROM^S MACROGLOBULINAEMIA REFRACTORY
     Route: 041
  5. ASPIRIN [Concomitant]
     Indication: PROPHYLAXIS
     Route: 065

REACTIONS (4)
  - Squamous cell carcinoma of skin [Unknown]
  - Blood immunoglobulin M increased [Unknown]
  - Neutropenia [Unknown]
  - No therapeutic response [Unknown]
